FAERS Safety Report 5496142-2 (Version None)
Quarter: 2007Q4

REPORT INFORMATION
  Report Type: 
  Country: None (occurrence: None)
  Receive Date: 20071023
  Receipt Date: 20071023
  Transmission Date: 20080405
  Serious: Yes (Other)
  Sender: FDA-Public Use
  Company Number: None

PATIENT
  Sex: Female
  Weight: 65.7716 kg

DRUGS (1)
  1. GLUCOSAMINE SULFATE 500 MG TOWN + COUNTRY MARKETS, INC., -WA- [Suspect]
     Indication: ARTHRITIS
     Dosage: 1 TABLET DAILY PO
     Route: 048
     Dates: start: 20070516, end: 20070518

REACTIONS (3)
  - DYSURIA [None]
  - URETHRAL HAEMORRHAGE [None]
  - URINARY INCONTINENCE [None]
